FAERS Safety Report 9500111 (Version 2)
Quarter: 2014Q1

REPORT INFORMATION
  Report Type: Spontaneous
  Country: US (occurrence: None)
  Receive Date: 20130118
  Receipt Date: 20140128
  Transmission Date: 20141002
  Serious: Yes (Hospitalization)
  Sender: FDA-Public Use
  Company Number: A-US2011-58039

PATIENT
  Age: 73 Year
  Sex: Male

DRUGS (4)
  1. TRACLEER [Suspect]
     Indication: PULMONARY ARTERIAL HYPERTENSION
     Route: 048
     Dates: start: 20100316
  2. SILDENAFIL (SILDENAFIL) [Concomitant]
  3. TYVASO (PREPROSTINIL SODIUM) [Concomitant]
  4. COUMADINE (WARFARIN SODIUM) [Concomitant]

REACTIONS (2)
  - Dyspnoea [None]
  - Oedema peripheral [None]
